FAERS Safety Report 10885708 (Version 3)
Quarter: 2015Q2

REPORT INFORMATION
  Report Type: Spontaneous
  Country: US (occurrence: None)
  Receive Date: 20150227
  Receipt Date: 20150518
  Transmission Date: 20150821
  Serious: Yes (Other)
  Sender: FDA-Public Use
  Company Number: 2015AKN00104

PATIENT
  Age: 39 Year
  Sex: Female

DRUGS (3)
  1. MYORISAN [Suspect]
     Active Substance: ISOTRETINOIN
     Dates: start: 20140721, end: 20150202
  2. UNSPECIFIED ORAL CONTRACEPTIVES [Concomitant]
     Active Substance: UNSPECIFIED INGREDIENT
  3. MYORISAN [Suspect]
     Active Substance: ISOTRETINOIN

REACTIONS (6)
  - Unintended pregnancy [None]
  - Abortion spontaneous [None]
  - Pregnancy after post coital contraception [None]
  - Maternal exposure during pregnancy [None]
  - Pregnancy with contraceptive device [None]
  - Drug dose omission [None]

NARRATIVE: CASE EVENT DATE: 20150110
